FAERS Safety Report 24076277 (Version 1)
Quarter: 2024Q3

REPORT INFORMATION
  Report Type: Spontaneous
  Country: PL (occurrence: PL)
  Receive Date: 20240711
  Receipt Date: 20240711
  Transmission Date: 20241016
  Serious: Yes (Hospitalization)
  Sender: TEVA
  Company Number: None

PATIENT
  Age: 29 Year
  Sex: Male
  Weight: 80 kg

DRUGS (1)
  1. QUETIAPINE [Suspect]
     Active Substance: QUETIAPINE
     Indication: Toxicity to various agents
     Route: 048
     Dates: start: 20201028, end: 20201028

REACTIONS (3)
  - Somnolence [Recovering/Resolving]
  - Altered state of consciousness [Recovering/Resolving]
  - Delirium tremens [Recovering/Resolving]

NARRATIVE: CASE EVENT DATE: 20201028
